FAERS Safety Report 15905725 (Version 2)
Quarter: 2025Q3

REPORT INFORMATION
  Report Type: Spontaneous
  Country: GB (occurrence: GB)
  Receive Date: 20190204
  Receipt Date: 20250911
  Transmission Date: 20251021
  Serious: Yes (Death, Hospitalization)
  Sender: AUROBINDO
  Company Number: GB-MYLANLABS-2019M1009455

PATIENT
  Age: 25 Year
  Sex: Female
  Weight: 45 kg

DRUGS (2)
  1. DANTROLENE [Suspect]
     Active Substance: DANTROLENE
     Indication: Chemical poisoning
     Route: 042
  2. ACETAMINOPHEN [Suspect]
     Active Substance: ACETAMINOPHEN
     Indication: Hyperthermia
     Route: 065

REACTIONS (1)
  - Drug ineffective [Fatal]
